FAERS Safety Report 12911560 (Version 23)
Quarter: 2022Q2

REPORT INFORMATION
  Report Type: Spontaneous
  Country: BR (occurrence: BR)
  Receive Date: 20161104
  Receipt Date: 20220610
  Transmission Date: 20220720
  Serious: Yes (Hospitalization, Other)
  Sender: FDA-Public Use
  Company Number: BR-PFIZER INC-2016186272

PATIENT
  Age: 58 Year
  Sex: Female
  Weight: 87 kg

DRUGS (11)
  1. ENBREL [Suspect]
     Active Substance: ETANERCEPT
     Indication: Psoriatic arthropathy
     Dosage: 50 MG, WEEKLY
     Route: 065
     Dates: start: 20151029
  2. ENBREL [Suspect]
     Active Substance: ETANERCEPT
     Dosage: UNK
     Route: 065
     Dates: start: 2016
  3. ENBREL [Suspect]
     Active Substance: ETANERCEPT
     Dosage: UNK
     Route: 065
  4. ENBREL [Suspect]
     Active Substance: ETANERCEPT
     Dosage: UNK
     Route: 065
  5. ENBREL [Suspect]
     Active Substance: ETANERCEPT
     Dosage: UNK
     Route: 065
  6. METHOTREXATE [Concomitant]
     Active Substance: METHOTREXATE
     Indication: Psoriatic arthropathy
     Dosage: 2 TABLETS OF 2.5MG (5MG), TWICE A DAY
     Route: 065
  7. FOLIC ACID [Concomitant]
     Active Substance: FOLIC ACID
     Indication: Anaemia
     Dosage: 5 MG, UNK
  8. LOSARTAN [Concomitant]
     Active Substance: LOSARTAN
     Indication: Hypertension
     Dosage: 50 MG, TWICE DAILY (50MG IN THE MORNING AND 50MG AT NIGHT)
  9. AMLODIPINE [Concomitant]
     Active Substance: AMLODIPINE BESYLATE
     Indication: Hypertension
     Dosage: 10 MG, DAILY
  10. FLUOXETINE [Concomitant]
     Active Substance: FLUOXETINE HYDROCHLORIDE
     Indication: Depression
     Dosage: 20 MG, DAILY
  11. RIVOTRIL [Concomitant]
     Active Substance: CLONAZEPAM
     Indication: Insomnia
     Dosage: 2 MG, ONCE A DAY (1 TABLET AT NIGHT)

REACTIONS (58)
  - Hypertension [Unknown]
  - Bone disorder [Recovering/Resolving]
  - Psoriatic arthropathy [Not Recovered/Not Resolved]
  - Abdominal pain [Unknown]
  - Tremor [Unknown]
  - Injection site mass [Recovered/Resolved]
  - Hand deformity [Unknown]
  - Stress [Unknown]
  - Ear pruritus [Unknown]
  - Skin exfoliation [Unknown]
  - Skin papilloma [Unknown]
  - Fear [Unknown]
  - Pain in extremity [Unknown]
  - Alopecia [Unknown]
  - Hair disorder [Unknown]
  - Feeling abnormal [Not Recovered/Not Resolved]
  - Nervousness [Not Recovered/Not Resolved]
  - Irritability [Not Recovered/Not Resolved]
  - Feeding disorder [Not Recovered/Not Resolved]
  - Musculoskeletal chest pain [Recovering/Resolving]
  - Depressed mood [Unknown]
  - Menstrual disorder [Unknown]
  - Cough [Not Recovered/Not Resolved]
  - Dysphonia [Not Recovered/Not Resolved]
  - Glaucoma [Unknown]
  - Disease recurrence [Not Recovered/Not Resolved]
  - Muscular weakness [Not Recovered/Not Resolved]
  - Gait disturbance [Unknown]
  - Atrophy [Not Recovered/Not Resolved]
  - Rash macular [Unknown]
  - Haemorrhage [Unknown]
  - Erythema [Unknown]
  - Injection site mass [Unknown]
  - Nephrolithiasis [Recovering/Resolving]
  - Fatigue [Unknown]
  - Anxiety [Not Recovered/Not Resolved]
  - Arthralgia [Unknown]
  - Dry eye [Unknown]
  - Asthenia [Unknown]
  - Pyrexia [Recovering/Resolving]
  - Pruritus [Unknown]
  - Therapeutic product effect incomplete [Unknown]
  - Dengue fever [Unknown]
  - Injection site pain [Unknown]
  - Injection site haematoma [Unknown]
  - Injection site discolouration [Unknown]
  - Injection site swelling [Not Recovered/Not Resolved]
  - Viral infection [Recovered/Resolved]
  - Injection site induration [Unknown]
  - Influenza [Unknown]
  - Injection site haemorrhage [Unknown]
  - Injection site erythema [Recovered/Resolved]
  - Varicose vein [Not Recovered/Not Resolved]
  - Chikungunya virus infection [Unknown]
  - Skin disorder [Unknown]
  - Wrong technique in device usage process [Unknown]
  - Thyroid disorder [Unknown]
  - Peripheral swelling [Not Recovered/Not Resolved]

NARRATIVE: CASE EVENT DATE: 20160101
